FAERS Safety Report 15782710 (Version 1)
Quarter: 2019Q1

REPORT INFORMATION
  Report Type: Spontaneous
  Country: US (occurrence: US)
  Receive Date: 20190102
  Receipt Date: 20190102
  Transmission Date: 20190417
  Serious: No
  Sender: FDA-Public Use
  Company Number: US-PFIZER INC-2016492553

PATIENT
  Age: 48 Year
  Sex: Female
  Weight: 81.63 kg

DRUGS (16)
  1. VITAMIN D3 [Concomitant]
     Active Substance: CHOLECALCIFEROL
     Dosage: 50000 IU, DAILY
     Route: 048
  2. ADVIL 12HOUR [Concomitant]
     Active Substance: IBUPROFEN
     Indication: PYREXIA
     Dosage: 100 MG, AS NEEDED(EVERY EIGHT HOURS)
     Route: 048
  3. BUSPIRONE HCL [Concomitant]
     Active Substance: BUSPIRONE HYDROCHLORIDE
     Dosage: 15 MG, 2X/DAY
     Route: 048
  4. WELLBUTRIN [Concomitant]
     Active Substance: BUPROPION HYDROCHLORIDE
     Dosage: 300 MG, 1X/DAY
  5. MOTRIN [Concomitant]
     Active Substance: IBUPROFEN
     Indication: PYREXIA
     Dosage: 100 MG, AS NEEDED (EVERY EIGHT HOURS)
     Route: 048
  6. ONDANSETRON HCL [Concomitant]
     Active Substance: ONDANSETRON HYDROCHLORIDE
     Indication: NAUSEA
     Dosage: 4 MG, AS NEEDED
  7. BUPROPION HCL ER [Concomitant]
     Active Substance: BUPROPION HYDROCHLORIDE
     Dosage: 1 DF, 1X/DAY  (IN THE MORNING)
     Route: 048
  8. LYRICA [Suspect]
     Active Substance: PREGABALIN
     Indication: FIBROMYALGIA
     Dosage: 150 MG, 2X/DAY
     Route: 048
     Dates: start: 20160926, end: 20161005
  9. KLONOPIN [Concomitant]
     Active Substance: CLONAZEPAM
     Indication: ANXIETY
     Dosage: 0.5 MG, AS NEEDED(TWO TIMES)
     Route: 048
  10. LYRICA [Suspect]
     Active Substance: PREGABALIN
     Dosage: 50 MG, AS NEEDED (THREE TIMES A DAY)
  11. MEVACOR [Concomitant]
     Active Substance: LOVASTATIN
     Dosage: 10 MG, 1X/DAY(AT BEDTIME)
     Route: 048
  12. ZOLOFT [Concomitant]
     Active Substance: SERTRALINE HYDROCHLORIDE
     Dosage: 200 MG, 1X/DAY
  13. TYLENOL [Concomitant]
     Active Substance: ACETAMINOPHEN
     Indication: PAIN
     Dosage: 500 MG, AS NEEDED (EVERY 6 HOURS)
     Route: 048
  14. ZOLOFT [Concomitant]
     Active Substance: SERTRALINE HYDROCHLORIDE
     Dosage: 150 MG, DAILY
     Route: 048
  15. FOLVITE [FOLIC ACID] [Concomitant]
     Dosage: 1 MG, DAILY
     Route: 048
  16. LYRICA [Suspect]
     Active Substance: PREGABALIN
     Dosage: 150 MG, 2X/DAY
     Route: 048
     Dates: start: 20161005, end: 20171005

REACTIONS (5)
  - Mobility decreased [Unknown]
  - Product use issue [Unknown]
  - Withdrawal syndrome [Unknown]
  - Red blood cell sedimentation rate increased [Unknown]
  - Pain [Unknown]
